FAERS Safety Report 9305767 (Version 1)
Quarter: 2013Q2

REPORT INFORMATION
  Report Type: Spontaneous
  Country: US (occurrence: US)
  Receive Date: 20130523
  Receipt Date: 20130523
  Transmission Date: 20140414
  Serious: No
  Sender: FDA-Public Use
  Company Number: US-PFIZER INC-2013155879

PATIENT
  Age: 79 Year
  Sex: Male
  Weight: 92.52 kg

DRUGS (4)
  1. TOVIAZ [Suspect]
     Indication: POLLAKIURIA
     Dosage: UNK
  2. TOVIAZ [Suspect]
     Indication: INCONTINENCE
     Dosage: 8 MG, DAILY
     Dates: start: 201301
  3. ALLOPURINOL [Concomitant]
     Indication: GOUT
     Dosage: 300 MG, DAILY
  4. ALLOPURINOL [Concomitant]
     Indication: BLOOD URIC ACID ABNORMAL

REACTIONS (2)
  - Dry mouth [Recovering/Resolving]
  - Retching [Unknown]
